FAERS Safety Report 12089719 (Version 1)
Quarter: 2016Q1

REPORT INFORMATION
  Report Type: Spontaneous
  Country: CH (occurrence: CH)
  Receive Date: 20160218
  Receipt Date: 20160218
  Transmission Date: 20160526
  Serious: Yes (Hospitalization)
  Sender: FDA-Public Use
  Company Number: CH-ASTRAZENECA-2016SE14474

PATIENT
  Age: 719 Month
  Sex: Male
  Weight: 110 kg

DRUGS (3)
  1. LISINOPRIL AND HYDROCHLOROTHIAZIDE [Concomitant]
     Active Substance: HYDROCHLOROTHIAZIDE\LISINOPRIL
     Indication: HYPERTENSION
     Dosage: 20/12.5 MG 1/ DAY
     Route: 048
  2. BELOC-ZOK [Suspect]
     Active Substance: METOPROLOL SUCCINATE
     Indication: HYPERTENSION
     Dosage: 1.5 X 50 MG/ DAY
     Route: 048
     Dates: start: 201511
  3. IMAZOL CREAM (CLOTRIMAZOLE\HEXAMIDINE DIISETHIONATE) [Suspect]
     Active Substance: CLOTRIMAZOLE\HEXAMIDINE DIISETHIONATE
     Indication: RASH
     Route: 061
     Dates: start: 20160106, end: 20160112

REACTIONS (2)
  - Eczema [Recovering/Resolving]
  - Dermatitis contact [Recovering/Resolving]

NARRATIVE: CASE EVENT DATE: 201601
